FAERS Safety Report 6240370-5 (Version None)
Quarter: 2009Q2

REPORT INFORMATION
  Report Type: 
  Country: None (occurrence: None)
  Receive Date: 20090623
  Receipt Date: 20080819
  Transmission Date: 20091009
  Serious: No
  Sender: FDA-Public Use
  Company Number: US-ASTRAZENECA-2008UW17678

PATIENT
  Age: 67 Year
  Sex: Female

DRUGS (7)
  1. PULMICORT-100 [Suspect]
     Route: 055
     Dates: end: 20080702
  2. PULMICORT-100 [Suspect]
     Route: 055
     Dates: start: 20080713
  3. BROVANA [Suspect]
     Indication: CHRONIC OBSTRUCTIVE PULMONARY DISEASE
     Dosage: 15 UG/2ML QD
     Route: 055
     Dates: start: 20080702, end: 20080713
  4. BROVANA [Suspect]
     Indication: ASTHMA
     Dosage: 15 UG/2ML QD
     Route: 055
     Dates: start: 20080702, end: 20080713
  5. DUONEB [Concomitant]
  6. BENAZEPRIL W/ HYDROCHLOROTHIAZIDE [Concomitant]
  7. ADVAIR HFA [Concomitant]

REACTIONS (2)
  - DIZZINESS [None]
  - DYSPNOEA [None]
